FAERS Safety Report 24127391 (Version 2)
Quarter: 2024Q3

REPORT INFORMATION
  Report Type: Spontaneous
  Country: TR (occurrence: TR)
  Receive Date: 20240723
  Receipt Date: 20240729
  Transmission Date: 20241016
  Serious: Yes (Other)
  Sender: PFIZER
  Company Number: TR-PFIZER INC-PV202400079973

PATIENT
  Age: 5 Year
  Sex: Female
  Weight: 15.5 kg

DRUGS (2)
  1. NGENLA [Suspect]
     Active Substance: SOMATROGON-GHLA
     Indication: Growth hormone deficiency
     Dosage: 0.66 MG, WEEKLY
     Route: 058
     Dates: start: 202404
  2. NGENLA [Suspect]
     Active Substance: SOMATROGON-GHLA
     Dosage: 0.03 MG, DAILY

REACTIONS (3)
  - Lack of injection site rotation [Not Recovered/Not Resolved]
  - Injection site atrophy [Not Recovered/Not Resolved]
  - Product prescribing issue [Unknown]

NARRATIVE: CASE EVENT DATE: 20240101
